FAERS Safety Report 5746199-6 (Version None)
Quarter: 2008Q2

REPORT INFORMATION
  Report Type: 
  Country: None (occurrence: None)
  Receive Date: 20080522
  Receipt Date: 20080512
  Transmission Date: 20081010
  Serious: Yes (Other)
  Sender: FDA-Public Use
  Company Number: CH-ROCHE-564036

PATIENT

DRUGS (2)
  1. ORLISTAT [Suspect]
     Indication: OBESITY
     Route: 065
     Dates: start: 19990601, end: 19990701
  2. NEORAL [Interacting]
     Indication: DRUG USE FOR UNKNOWN INDICATION
     Dosage: DOSAGE: 150-190 DUE TO TROUGH LEVEL.
     Route: 065

REACTIONS (3)
  - DRUG INTERACTION [None]
  - IMMUNOSUPPRESSANT DRUG LEVEL DECREASED [None]
  - TRANSPLANT REJECTION [None]
